FAERS Safety Report 9626136 (Version 1)
Quarter: 2013Q4

REPORT INFORMATION
  Report Type: Spontaneous
  Country: None (occurrence: US)
  Receive Date: 20131016
  Receipt Date: 20131016
  Transmission Date: 20140711
  Serious: Yes (Hospitalization)
  Sender: FDA-Public Use
  Company Number: US-MERZ PHARMACEUTICALS, LLC DRUG SAFETY-13MRZ-00145

PATIENT
  Age: 2 Year
  Sex: Female

DRUGS (3)
  1. CUVPOSA [Suspect]
     Dosage: PO FOUR TIMES DAILY
  2. EES AZITHROMYCIN [Concomitant]
     Dosage: PO 200MG IN 5 ML GRANULES
  3. C LANSOPRIL [Concomitant]
     Dosage: PO 3MG/ML

REACTIONS (1)
  - Convulsion [Unknown]
